FAERS Safety Report 9816409 (Version 1)
Quarter: 2014Q1

REPORT INFORMATION
  Report Type: Spontaneous
  Country: US (occurrence: US)
  Receive Date: 20140114
  Receipt Date: 20140114
  Transmission Date: 20141002
  Serious: No
  Sender: FDA-Public Use
  Company Number: US-TARO-2013P1000146

PATIENT
  Sex: Female

DRUGS (1)
  1. DESOXIMETASONE CREAM USP 0.25% [Suspect]

REACTIONS (1)
  - Rash [Not Recovered/Not Resolved]
